FAERS Safety Report 24131873 (Version 2)
Quarter: 2024Q3

REPORT INFORMATION
  Report Type: Report from Study
  Country: FR (occurrence: FR)
  Receive Date: 20240724
  Receipt Date: 20240828
  Transmission Date: 20241016
  Serious: Yes (Other)
  Sender: PFIZER
  Company Number: FR-SEATTLE GENETICS-2021SGN01560

PATIENT
  Age: 77 Year
  Sex: Female
  Weight: 55 kg

DRUGS (3)
  1. TUCATINIB [Suspect]
     Active Substance: TUCATINIB
     Indication: HER2 positive breast cancer
     Dosage: TWICE DAILY WITH A 21-DAY TREATMENT CYCLE
     Route: 048
     Dates: start: 20210116, end: 20210208
  2. TRASTUZUMAB [Suspect]
     Active Substance: TRASTUZUMAB
     Indication: HER2 positive breast cancer
     Dosage: 600 MG, EVERY 3 WEEKS
     Route: 058
  3. CAPECITABINE [Suspect]
     Active Substance: CAPECITABINE
     Indication: HER2 positive breast cancer
     Dosage: TWICE DAILY (DAYS 1 TO 14 OF A 21-DAY CYCLE)
     Route: 048

REACTIONS (3)
  - Hypokalaemia [Recovered/Resolved]
  - Hepatotoxicity [Recovering/Resolving]
  - Diarrhoea [Recovered/Resolved]

NARRATIVE: CASE EVENT DATE: 20210129
